FAERS Safety Report 4458269-3 (Version None)
Quarter: 2004Q3

REPORT INFORMATION
  Report Type: 
  Country: None (occurrence: None)
  Receive Date: 20040917
  Receipt Date: 20040419
  Transmission Date: 20050211
  Serious: Yes (Hospitalization)
  Sender: FDA-Public Use
  Company Number: US-JNJFOC-20040204656

PATIENT
  Sex: 0

DRUGS (1)
  1. TOPAMAX (TOPIRAMATEA) UNSPECIFIED [Suspect]
     Dosage: 1 DOSE(S),

REACTIONS (1)
  - DYSTONIA [None]
